FAERS Safety Report 4290929-X (Version None)
Quarter: 2004Q1

REPORT INFORMATION
  Report Type: 
  Country: None (occurrence: None)
  Receive Date: 20040211
  Receipt Date: 20031014
  Transmission Date: 20041129
  Serious: No
  Sender: FDA-Public Use
  Company Number: US-GLAXOSMITHKLINE-A0430260A

PATIENT
  Sex: Female

DRUGS (1)
  1. PAXIL [Suspect]
     Dosage: 40MG PER DAY
     Route: 048

REACTIONS (5)
  - CRYING [None]
  - DEPRESSION [None]
  - DIZZINESS [None]
  - DRUG WITHDRAWAL SYNDROME [None]
  - NAUSEA [None]
